FAERS Safety Report 4624240-1 (Version None)
Quarter: 2005Q1

REPORT INFORMATION
  Report Type: 
  Country: None (occurrence: None)
  Receive Date: 20050329
  Receipt Date: 20050329
  Transmission Date: 20050727
  Serious: Yes (Death)
  Sender: FDA-Public Use
  Company Number: None

PATIENT
  Age: 29 Year
  Sex: Male

DRUGS (6)
  1. NEURONTIN [Suspect]
     Indication: BIPOLAR DISORDER
     Dosage: 1800MG DAILY, ORAL
     Route: 048
     Dates: start: 20030201, end: 20030701
  2. LITHOBID [Concomitant]
  3. SEROQUEL [Concomitant]
  4. NAVAINE [Concomitant]
  5. KLONOPIN [Concomitant]
  6. COGENTIN [Concomitant]

REACTIONS (2)
  - COMPLETED SUICIDE [None]
  - OVERDOSE [None]
